FAERS Safety Report 22201530 (Version 1)
Quarter: 2023Q2

REPORT INFORMATION
  Report Type: Spontaneous
  Country: US (occurrence: US)
  Receive Date: 20230412
  Receipt Date: 20230412
  Transmission Date: 20230721
  Serious: No
  Sender: FDA-Public Use
  Company Number: US-CORCEPT THERAPEUTICS INC.-US-2022CRT000837

PATIENT

DRUGS (1)
  1. KORLYM [Suspect]
     Active Substance: MIFEPRISTONE
     Indication: Product used for unknown indication
     Route: 048

REACTIONS (3)
  - Withdrawal syndrome [Unknown]
  - Nausea [Unknown]
  - Fatigue [Unknown]
